FAERS Safety Report 20808118 (Version 1)
Quarter: 2022Q2

REPORT INFORMATION
  Report Type: Spontaneous
  Country: CA (occurrence: CA)
  Receive Date: 20220510
  Receipt Date: 20220510
  Transmission Date: 20220721
  Serious: Yes (Other)
  Sender: FDA-Public Use
  Company Number: CA-SAMSUNG BIOEPIS-SB-2022-10746

PATIENT
  Age: 49 Year
  Sex: Female
  Weight: 66 kg

DRUGS (29)
  1. INFLIXIMAB [Suspect]
     Active Substance: INFLIXIMAB
     Indication: Crohn^s disease
     Route: 042
  2. INFLIXIMAB [Suspect]
     Active Substance: INFLIXIMAB
     Dosage: MINUS 56
     Route: 042
  3. INFLIXIMAB [Suspect]
     Active Substance: INFLIXIMAB
     Dosage: MINUS 28
     Route: 042
  4. INFLIXIMAB [Suspect]
     Active Substance: INFLIXIMAB
     Route: 042
  5. INFLIXIMAB [Suspect]
     Active Substance: INFLIXIMAB
     Dosage: MINUS 234
     Route: 042
  6. INFLIXIMAB [Suspect]
     Active Substance: INFLIXIMAB
     Route: 042
  7. INFLIXIMAB [Suspect]
     Active Substance: INFLIXIMAB
     Route: 042
  8. INFLIXIMAB [Suspect]
     Active Substance: INFLIXIMAB
     Dosage: MINUS 262
     Route: 042
  9. INFLIXIMAB [Suspect]
     Active Substance: INFLIXIMAB
     Route: 042
  10. INFLIXIMAB [Suspect]
     Active Substance: INFLIXIMAB
     Route: 042
  11. HUMIRA [Suspect]
     Active Substance: ADALIMUMAB
     Indication: Crohn^s disease
     Dosage: SOLUTION SUBCUTANEOUS, UNKNOWN
     Route: 058
  12. IMURAN [Suspect]
     Active Substance: AZATHIOPRINE
     Indication: Product used for unknown indication
     Dosage: UNKNOWN
     Route: 065
  13. STELARA [Suspect]
     Active Substance: USTEKINUMAB
     Indication: Product used for unknown indication
     Dosage: UNKNOWN, SOLUTION SUBCUTANEOUS
     Route: 065
  14. VEDOLIZUMAB [Suspect]
     Active Substance: VEDOLIZUMAB
     Indication: Product used for unknown indication
     Dosage: UNKNOWN
     Route: 065
  15. VEDOLIZUMAB [Suspect]
     Active Substance: VEDOLIZUMAB
     Dosage: UNKNOWN
     Route: 065
  16. ACRIVASTINE [Concomitant]
     Active Substance: ACRIVASTINE
     Indication: Product used for unknown indication
     Dosage: UNKNOWN
     Route: 065
  17. AMYLOCAINE HYDROCHLORIDE/BENZALKONIUM CHLORIDE/BENZOCAINE/ ESCULIN/HYD [Concomitant]
     Indication: Product used for unknown indication
     Dosage: UNKNOWN
     Route: 065
  18. CALCIUM CARBONATE [Concomitant]
     Active Substance: CALCIUM CARBONATE
     Indication: Product used for unknown indication
     Dosage: UNKNOWN
     Route: 065
  19. CHOLESTYRAMINE [Concomitant]
     Active Substance: CHOLESTYRAMINE
     Indication: Product used for unknown indication
     Dosage: UNKNOWN
     Route: 065
  20. CORTIMENT [Concomitant]
     Indication: Product used for unknown indication
     Dosage: UNKNOWN, (DELAYED AND EXTENDED RELEASE)
     Route: 065
  21. HYDROCORTISONE [Concomitant]
     Active Substance: HYDROCORTISONE
     Indication: Product used for unknown indication
     Dosage: UNKNOWN
     Route: 065
  22. OMEGA 3 [Concomitant]
     Active Substance: CAPSAICIN
     Indication: Product used for unknown indication
     Dosage: UNKNOWN
     Route: 065
  23. PENTASA [Concomitant]
     Active Substance: MESALAMINE
     Indication: Product used for unknown indication
     Dosage: UNKNOWN
     Route: 065
  24. HERBALS\PLANTAGO OVATA LEAF [Concomitant]
     Active Substance: HERBALS\PLANTAGO OVATA LEAF
     Indication: Product used for unknown indication
     Dosage: UNKNOWN
     Route: 065
  25. PREDNISONE [Concomitant]
     Active Substance: PREDNISONE
     Indication: Product used for unknown indication
     Dosage: UNKNOWN
     Route: 065
  26. DIETARY SUPPLEMENT\HERBALS\MILK THISTLE [Concomitant]
     Active Substance: DIETARY SUPPLEMENT\HERBALS\MILK THISTLE
     Indication: Product used for unknown indication
     Dosage: UNKNOWN
     Route: 065
  27. VITAMIN C [Concomitant]
     Active Substance: ASCORBIC ACID
     Indication: Product used for unknown indication
     Dosage: UNKNOWN
     Route: 065
  28. VITAMIN D [Concomitant]
     Active Substance: VITAMIN D NOS
     Indication: Product used for unknown indication
     Dosage: UNKNOWN
     Route: 065
  29. XELJANZ [Concomitant]
     Active Substance: TOFACITINIB CITRATE
     Indication: Product used for unknown indication
     Dosage: UNKNOWN
     Route: 065

REACTIONS (23)
  - Abdominal pain [Unknown]
  - Anal fissure [Unknown]
  - Arthralgia [Unknown]
  - Biliary tract disorder [Unknown]
  - Cholangitis sclerosing [Unknown]
  - Colitis [Unknown]
  - Diarrhoea [Unknown]
  - Enteritis [Unknown]
  - Faecal calprotectin increased [Unknown]
  - Feeling abnormal [Unknown]
  - Gastrointestinal disorder [Unknown]
  - Haemorrhage [Unknown]
  - Hepatic fibrosis [Unknown]
  - Inflammation [Unknown]
  - Laboratory test abnormal [Unknown]
  - Nasopharyngitis [Unknown]
  - Oedema [Unknown]
  - Pain in extremity [Unknown]
  - Proctalgia [Unknown]
  - Drug level decreased [Unknown]
  - Drug ineffective [Unknown]
  - Off label use [Unknown]
  - Product use issue [Unknown]
